FAERS Safety Report 5380186-5 (Version None)
Quarter: 2007Q3

REPORT INFORMATION
  Report Type: 
  Country: None (occurrence: None)
  Receive Date: 20070706
  Receipt Date: 20070509
  Transmission Date: 20080115
  Serious: No
  Sender: FDA-Public Use
  Company Number: A0650611A

PATIENT
  Age: 55 Year
  Sex: Female

DRUGS (9)
  1. TYKERB [Suspect]
     Indication: BREAST CANCER
     Dosage: 1250MG PER DAY
     Route: 048
     Dates: start: 20070408
  2. HERCEPTIN [Concomitant]
  3. UNKNOWN MEDICATION [Concomitant]
  4. ASTELIN [Concomitant]
  5. TAMOXIFEN CITRATE [Concomitant]
  6. ZYRTEC [Concomitant]
  7. ZYRTEC-D [Concomitant]
  8. PREVACID [Concomitant]
  9. ZOFRAN [Concomitant]

REACTIONS (1)
  - FATIGUE [None]
